FAERS Safety Report 6011606-0 (Version None)
Quarter: 2008Q4

REPORT INFORMATION
  Report Type: 
  Country: None (occurrence: None)
  Receive Date: 20081218
  Receipt Date: 20080922
  Transmission Date: 20090506
  Serious: No
  Sender: FDA-Public Use
  Company Number: US-ASTRAZENECA-2008UW19755

PATIENT
  Age: 81 Year
  Sex: Male
  Weight: 77.1 kg

DRUGS (5)
  1. CRESTOR [Suspect]
     Indication: BLOOD CHOLESTEROL INCREASED
     Route: 048
     Dates: start: 20080915
  2. PLAVIX [Concomitant]
  3. LOPRESSOR [Concomitant]
  4. ZESTRIL [Concomitant]
  5. ASPIRIN [Concomitant]

REACTIONS (1)
  - DIARRHOEA [None]
